FAERS Safety Report 14590038 (Version 2)
Quarter: 2018Q1

REPORT INFORMATION
  Report Type: Spontaneous
  Country: CA (occurrence: CA)
  Receive Date: 20180302
  Receipt Date: 20180319
  Transmission Date: 20180509
  Serious: Yes (Other)
  Sender: FDA-Public Use
  Company Number: CA-ROCHE-2080409

PATIENT
  Age: 2 Year
  Sex: Male

DRUGS (2)
  1. OMALIZUMAB. [Suspect]
     Active Substance: OMALIZUMAB
     Dosage: 300 MG, EVERY 2 WEEKS FOR A MONTH
     Route: 058
  2. OMALIZUMAB. [Suspect]
     Active Substance: OMALIZUMAB
     Indication: MASTOCYTOSIS
     Dosage: 150 MG, UNK
     Route: 058

REACTIONS (2)
  - Mastocytosis [Unknown]
  - Product use in unapproved indication [Unknown]
